FAERS Safety Report 4370969-2 (Version None)
Quarter: 2004Q2

REPORT INFORMATION
  Report Type: 
  Country: None (occurrence: None)
  Receive Date: 20040601
  Receipt Date: 20040216
  Transmission Date: 20050107
  Serious: Yes (Other)
  Sender: FDA-Public Use
  Company Number: 2003183362FR

PATIENT
  Age: 73 Year
  Sex: Male
  Weight: 84 kg

DRUGS (3)
  1. VANTIN [Suspect]
     Indication: SINUSITIS
     Dosage: 400 MG, DAILY, ORAL
     Route: 048
     Dates: start: 20030829, end: 20030904
  2. IMUREL [Concomitant]
  3. MYTELASE [Concomitant]

REACTIONS (4)
  - CONVULSION [None]
  - DYSPHAGIA [None]
  - JAW DISORDER [None]
  - MYASTHENIA GRAVIS [None]
